FAERS Safety Report 8224095-2 (Version None)
Quarter: 2012Q1

REPORT INFORMATION
  Report Type: 
  Country: None (occurrence: None)
  Receive Date: 20120307
  Receipt Date: 20110401
  Transmission Date: 20120608
  Serious: No
  Sender: FDA-Public Use
  Company Number: PHHY2011US28024

PATIENT
  Sex: Female

DRUGS (13)
  1. DOXEPIN HCL [Concomitant]
  2. MULTIVITAMINS (ASCORBIC ACID, ERGOCALCIFEROL, FOLIC ACID, NICOTINAMIDE [Concomitant]
  3. KLONOPIN [Concomitant]
  4. VITAMIN B12 [Concomitant]
  5. MAGNESIUM (MAGNESIUM) [Concomitant]
  6. LAMICTAL [Concomitant]
  7. PROGESTERONE [Concomitant]
  8. AFINITOR [Suspect]
     Dosage: 05 MG, ORAL
     Route: 048
     Dates: start: 20101227
  9. POTASSIUM CHLORIDE [Concomitant]
  10. ZINC (ZINC) [Concomitant]
  11. TOPAMAX [Concomitant]
  12. VITAMIN D [Concomitant]
  13. CALCIUM CARBONATE [Concomitant]

REACTIONS (1)
  - ALOPECIA [None]
